FAERS Safety Report 16659863 (Version 1)
Quarter: 2019Q3

REPORT INFORMATION
  Report Type: Spontaneous
  Country: US (occurrence: US)
  Receive Date: 20190618
  Receipt Date: 20190618
  Transmission Date: 20191004
  Serious: Yes (Hospitalization)
  Sender: FDA-Public Use
  Company Number: None

PATIENT
  Sex: Female
  Weight: 66.7 kg

DRUGS (3)
  1. GEMCITABINE HYDROCHLORIDE. [Suspect]
     Active Substance: GEMCITABINE HYDROCHLORIDE
     Dates: end: 20190501
  2. CISPLATIN. [Suspect]
     Active Substance: CISPLATIN
     Dates: end: 20190501
  3. PACLITAXEL PROTEIN-BOUND PARTICLES (ALBUMIN-BOUND) [Suspect]
     Active Substance: PACLITAXEL
     Dates: end: 20190501

REACTIONS (5)
  - Fatigue [None]
  - Pain [None]
  - Asthenia [None]
  - Fall [None]
  - Humerus fracture [None]

NARRATIVE: CASE EVENT DATE: 02190528
